FAERS Safety Report 19719298 (Version 2)
Quarter: 2021Q3

REPORT INFORMATION
  Report Type: Report from Study
  Country: CA (occurrence: CA)
  Receive Date: 20210818
  Receipt Date: 20210830
  Transmission Date: 20211014
  Serious: Yes (Death, Hospitalization)
  Sender: FDA-Public Use
  Company Number: CA-OTSUKA-2021_024473

PATIENT
  Age: 76 Year
  Sex: Male

DRUGS (1)
  1. CEDAZURIDINE AND DECITABINE [Suspect]
     Active Substance: CEDAZURIDINE\DECITABINE
     Indication: MYELODYSPLASTIC SYNDROME
     Dosage: (35 MG DECITABINE AND 100 MG CEDAZURIDINE)
     Route: 065
     Dates: start: 20210503

REACTIONS (6)
  - Pulmonary oedema [Unknown]
  - Death [Fatal]
  - Cardiac disorder [Unknown]
  - Pyrexia [Unknown]
  - Dyspnoea [Unknown]
  - Blood count abnormal [Unknown]

NARRATIVE: CASE EVENT DATE: 20210815
